FAERS Safety Report 21098735 (Version 4)
Quarter: 2022Q4

REPORT INFORMATION
  Report Type: Spontaneous
  Country: US (occurrence: US)
  Receive Date: 20220719
  Receipt Date: 20221102
  Transmission Date: 20230113
  Serious: Yes (Hospitalization)
  Sender: FDA-Public Use
  Company Number: US-BRISTOL-MYERS SQUIBB COMPANY-2022-071732

PATIENT
  Age: 69 Year
  Sex: Male
  Weight: 48.99 kg

DRUGS (2)
  1. POMALYST [Suspect]
     Active Substance: POMALIDOMIDE
     Indication: Plasma cell myeloma
     Dosage: DAILY ON DAYS 1-21 EVERY 28 DAYS
     Route: 048
     Dates: start: 20191230
  2. POMALYST [Suspect]
     Active Substance: POMALIDOMIDE
     Dosage: DAILY X 21 DAYS, EVERY 28 DAY, D1-21 Q28 DAYS
     Route: 048
     Dates: start: 20220718

REACTIONS (1)
  - Hepatic enzyme increased [Not Recovered/Not Resolved]
